FAERS Safety Report 5931458-4 (Version None)
Quarter: 2008Q4

REPORT INFORMATION
  Report Type: 
  Country: None (occurrence: None)
  Receive Date: 20081024
  Receipt Date: 20081024
  Transmission Date: 20090506
  Serious: Yes (Hospitalization, Disabling)
  Sender: FDA-Public Use
  Company Number: None

PATIENT
  Age: 47 Year
  Sex: Female
  Weight: 70 kg

DRUGS (4)
  1. MIRENA [Suspect]
     Indication: ENDOMETRIAL HYPERTROPHY
     Dates: start: 20070512, end: 20081009
  2. MIRENA [Suspect]
     Indication: FLOODING
     Dates: start: 20070512, end: 20081009
  3. MIRENA [Suspect]
     Indication: MENORRHAGIA
     Dates: start: 20070512, end: 20081009
  4. MIRENA [Suspect]
     Indication: THROMBOSIS
     Dates: start: 20070512, end: 20081009

REACTIONS (19)
  - BREAST DISCHARGE [None]
  - CHOLECYSTITIS [None]
  - CONSTIPATION [None]
  - DIARRHOEA [None]
  - FATIGUE [None]
  - HEADACHE [None]
  - HYPERTENSION [None]
  - HYPOAESTHESIA [None]
  - HYSTERECTOMY [None]
  - IUD MIGRATION [None]
  - LETHARGY [None]
  - MASTITIS [None]
  - MUSCLE TIGHTNESS [None]
  - MUSCULOSKELETAL STIFFNESS [None]
  - NEPHROLITHIASIS [None]
  - PAIN IN EXTREMITY [None]
  - PALPITATIONS [None]
  - SINUSITIS [None]
  - VERTIGO [None]
